FAERS Safety Report 6535164-7 (Version None)
Quarter: 2010Q1

REPORT INFORMATION
  Report Type: 
  Country: None (occurrence: None)
  Receive Date: 20100113
  Receipt Date: 20091006
  Transmission Date: 20100710
  Serious: No
  Sender: FDA-Public Use
  Company Number: A0817555A

PATIENT
  Age: 62 Year
  Sex: Male

DRUGS (1)
  1. SOLAGE [Suspect]
     Route: 061
     Dates: start: 20091001, end: 20091002

REACTIONS (4)
  - APPLICATION SITE ERYTHEMA [None]
  - DERMATITIS [None]
  - PRODUCT QUALITY ISSUE [None]
  - SWELLING FACE [None]
